FAERS Safety Report 7433515-2 (Version None)
Quarter: 2011Q2

REPORT INFORMATION
  Report Type: 
  Country: None (occurrence: None)
  Receive Date: 20110422
  Receipt Date: 20110110
  Transmission Date: 20111010
  Serious: No
  Sender: FDA-Public Use
  Company Number: US-MUTUAL PHARMACEUTICAL COMPANY, INC.-CLHC20110003

PATIENT
  Sex: Female
  Weight: 56.75 kg

DRUGS (4)
  1. COLCHICINE [Suspect]
     Indication: CONSTIPATION
     Route: 048
     Dates: end: 20101201
  2. COLCHICINE [Suspect]
     Dates: start: 20101201
  3. CARDIZEM [Concomitant]
     Indication: PRODUCT USED FOR UNKNOWN INDICATION
     Route: 065
  4. LIPITOR [Concomitant]
     Indication: BLOOD CHOLESTEROL INCREASED
     Route: 065

REACTIONS (1)
  - HYPOAESTHESIA [None]
